FAERS Safety Report 7595294-8 (Version None)
Quarter: 2011Q3

REPORT INFORMATION
  Report Type: 
  Country: None (occurrence: None)
  Receive Date: 20110707
  Receipt Date: 20110627
  Transmission Date: 20111222
  Serious: Yes (Hospitalization, Other)
  Sender: FDA-Public Use
  Company Number: IE-AMGEN-IRLSP2011032733

PATIENT
  Sex: Female

DRUGS (7)
  1. IMURAN [Concomitant]
  2. ARANESP [Suspect]
     Indication: RENAL FAILURE CHRONIC
     Dosage: 50 A?G, Q2WK
     Route: 058
     Dates: start: 20101007
  3. DELTACORTRIL                       /00016201/ [Concomitant]
  4. BETALOC                            /00376902/ [Concomitant]
  5. BUMETANIDE [Concomitant]
  6. ASPIRIN [Concomitant]
  7. GALFER [Concomitant]

REACTIONS (2)
  - FLUID RETENTION [None]
  - TERMINAL STATE [None]
